FAERS Safety Report 24001362 (Version 3)
Quarter: 2024Q3

REPORT INFORMATION
  Report Type: Spontaneous
  Country: US (occurrence: US)
  Receive Date: 20240621
  Receipt Date: 20240816
  Transmission Date: 20241017
  Serious: Yes (Hospitalization, Disabling, Other)
  Sender: SUNOVION
  Company Number: US-SMPA-2024SPA000064

PATIENT

DRUGS (6)
  1. APTIOM [Suspect]
     Active Substance: ESLICARBAZEPINE ACETATE
     Indication: Epilepsy
     Dosage: UNK
     Route: 048
     Dates: start: 202001
  2. APTIOM [Suspect]
     Active Substance: ESLICARBAZEPINE ACETATE
     Dosage: 800 MG, QD
     Route: 048
  3. LAMICTAL [Concomitant]
     Active Substance: LAMOTRIGINE
     Indication: Seizure
     Dosage: UNK, BID
     Route: 048
  4. LAMICTAL [Concomitant]
     Active Substance: LAMOTRIGINE
     Indication: Epilepsy
  5. CLOBAZAM [Concomitant]
     Active Substance: CLOBAZAM
     Indication: Seizure
     Dosage: UNK
     Route: 065
     Dates: start: 2020
  6. CLOBAZAM [Concomitant]
     Active Substance: CLOBAZAM
     Indication: Epilepsy

REACTIONS (16)
  - Limb injury [Not Recovered/Not Resolved]
  - Generalised tonic-clonic seizure [Not Recovered/Not Resolved]
  - Petit mal epilepsy [Not Recovered/Not Resolved]
  - Hallucination [Unknown]
  - Seizure [Not Recovered/Not Resolved]
  - Road traffic accident [Unknown]
  - Incoherent [Recovered/Resolved]
  - Tooth fracture [Not Recovered/Not Resolved]
  - Weight decreased [Not Recovered/Not Resolved]
  - Dyspnoea [Unknown]
  - Fall [Unknown]
  - Speech disorder [Not Recovered/Not Resolved]
  - Memory impairment [Not Recovered/Not Resolved]
  - Aura [Unknown]
  - Tremor [Unknown]
  - Therapeutic response unexpected [Unknown]
